FAERS Safety Report 17695469 (Version 2)
Quarter: 2020Q2

REPORT INFORMATION
  Report Type: Report from Study
  Country: PA (occurrence: PA)
  Receive Date: 20200422
  Receipt Date: 20200507
  Transmission Date: 20200714
  Serious: Yes (Hospitalization, Other)
  Sender: FDA-Public Use
  Company Number: PA-ROCHE-2588439

PATIENT
  Age: 43 Year
  Sex: Female

DRUGS (6)
  1. LORATADINE. [Concomitant]
     Active Substance: LORATADINE
     Indication: ASTHMA
     Dosage: (TWICE A DAY IN THE MORNING AND AT NIGHT)
     Route: 065
  2. SALMETEROL [Concomitant]
     Active Substance: SALMETEROL
     Indication: ASTHMA
     Dosage: EVERY 12 HOURS (TWICE A DAY)
     Route: 065
  3. XOLAIR [Suspect]
     Active Substance: OMALIZUMAB
     Indication: ASTHMA
     Dosage: 150 MG, QMO
     Route: 058
     Dates: start: 20170928
  4. IPRATROPIUM BROMIDE. [Concomitant]
     Active Substance: IPRATROPIUM BROMIDE
     Indication: ASTHMA
     Dosage: EVERY 12 HOURS (TWICE A DAY)
     Route: 065
  5. MONTELUKAST [Concomitant]
     Active Substance: MONTELUKAST SODIUM
     Indication: ASTHMA
     Dosage: UNK, QD
     Route: 065
  6. BETAMETHASONE. [Concomitant]
     Active Substance: BETAMETHASONE
     Indication: DERMATITIS
     Dosage: ONCE IN THE MORNING AND ONCE AT NIGHT
     Route: 065

REACTIONS (10)
  - Rheumatoid arthritis [Unknown]
  - Pyrexia [Recovering/Resolving]
  - Discomfort [Not Recovered/Not Resolved]
  - Pain [Unknown]
  - Reflux gastritis [Unknown]
  - Uterine leiomyoma [Unknown]
  - Haemorrhage [Unknown]
  - Pain in extremity [Not Recovered/Not Resolved]
  - Headache [Not Recovered/Not Resolved]
  - Fatigue [Not Recovered/Not Resolved]

NARRATIVE: CASE EVENT DATE: 201912
